FAERS Safety Report 7201615-8 (Version None)
Quarter: 2010Q4

REPORT INFORMATION
  Report Type: 
  Country: None (occurrence: None)
  Receive Date: 20101229
  Receipt Date: 20101217
  Transmission Date: 20110411
  Serious: Yes (Disabling)
  Sender: FDA-Public Use
  Company Number: GB-TEVA-256651ISR

PATIENT
  Sex: Female
  Weight: 98 kg

DRUGS (4)
  1. CLARITHROMYCIN [Suspect]
     Indication: INFECTION
     Route: 048
     Dates: start: 20101022, end: 20101026
  2. BISOPROLOL [Concomitant]
     Route: 048
     Dates: start: 20090316
  3. ESTRADIOL VALERATE [Concomitant]
     Route: 048
     Dates: start: 19940101
  4. FUROSEMIDE [Concomitant]

REACTIONS (2)
  - ARTHRALGIA [None]
  - MYALGIA [None]
